FAERS Safety Report 9408653 (Version 1)
Quarter: 2013Q3

REPORT INFORMATION
  Report Type: Spontaneous
  Country: US (occurrence: US)
  Receive Date: 20130718
  Receipt Date: 20130718
  Transmission Date: 20140515
  Serious: Yes (Death)
  Sender: FDA-Public Use
  Company Number: US-FRI-1000046821

PATIENT
  Sex: Female
  Weight: 61.24 kg

DRUGS (13)
  1. DALIRESP [Suspect]
     Indication: CHRONIC OBSTRUCTIVE PULMONARY DISEASE
     Dosage: 500 MCG
     Route: 048
     Dates: start: 20120814, end: 20130531
  2. KLONOPIN [Concomitant]
     Dosage: 1 MG
  3. SPIRIVA [Concomitant]
     Dosage: DAILY
  4. AMBIEN [Concomitant]
     Dosage: 5 MG AT NIGHT PRN
  5. DUONEB [Concomitant]
     Dosage: EVERY 4 HRS
  6. VITAMIN B12 [Concomitant]
     Dosage: MONTHLY
  7. CELEXA [Concomitant]
     Dosage: 20 MG
  8. PLAVIX [Concomitant]
     Dosage: 75 MG
  9. PRAVACHOL [Concomitant]
     Dosage: 40 MG
  10. LISINOPRIL [Concomitant]
     Dosage: 10 MG
  11. ASPIRIN [Concomitant]
     Dosage: 81 MG
  12. LORTAB [Concomitant]
     Dosage: 7.5 MG EVERY 8 HRS PRN
  13. OMEPRAZOLE [Concomitant]
     Dosage: 40 MG

REACTIONS (1)
  - Chronic obstructive pulmonary disease [Fatal]
